FAERS Safety Report 7776804-4 (Version None)
Quarter: 2011Q3

REPORT INFORMATION
  Report Type: 
  Country: None (occurrence: None)
  Receive Date: 20110926
  Receipt Date: 20110912
  Transmission Date: 20111222
  Serious: Yes (Hospitalization)
  Sender: FDA-Public Use
  Company Number: IT-MYLANLABS-2011S1019024

PATIENT
  Age: 35 Year
  Sex: Male

DRUGS (3)
  1. CITALOPRAM [Suspect]
     Indication: PRODUCT USED FOR UNKNOWN INDICATION
     Route: 048
     Dates: start: 20110519, end: 20110619
  2. LORAZEPAM [Concomitant]
     Indication: INSOMNIA
     Dates: start: 20110612, end: 20110619
  3. AMISULPRIDE [Suspect]
     Indication: PRODUCT USED FOR UNKNOWN INDICATION
     Route: 048
     Dates: start: 20110519, end: 20110619

REACTIONS (1)
  - ACTIVATION SYNDROME [None]
